FAERS Safety Report 23963453 (Version 1)
Quarter: 2024Q2

REPORT INFORMATION
  Report Type: Spontaneous
  Country: AU (occurrence: AU)
  Receive Date: 20240611
  Receipt Date: 20240611
  Transmission Date: 20240716
  Serious: Yes (Hospitalization)
  Sender: FDA-Public Use
  Company Number: AU-ELI_LILLY_AND_COMPANY-AU202405018178

PATIENT
  Age: 56 Year
  Sex: Male
  Weight: 72.3 kg

DRUGS (14)
  1. DULOXETINE HYDROCHLORIDE [Suspect]
     Active Substance: DULOXETINE HYDROCHLORIDE
     Indication: Depression
     Dosage: 90 MG, DAILY
     Route: 048
     Dates: start: 2011
  2. GEMCITABINE HYDROCHLORIDE [Suspect]
     Active Substance: GEMCITABINE HYDROCHLORIDE
     Indication: Neoplasm
     Dosage: 1000 MG/M2, WEEKLY (1/W) (ON DAY 1, 8 AND 15)
     Route: 042
     Dates: start: 20240311, end: 20240326
  3. ABRAXANE [Suspect]
     Active Substance: PACLITAXEL
     Indication: Neoplasm
     Dosage: 125 MG/M2, WEEKLY (1/W) (ON DAY 1, 8 AND 15)
     Route: 042
     Dates: start: 20240311
  4. PERINDOPRIL/AMLODIPINE HCS [Concomitant]
     Indication: Hypertension
     Dosage: 10 MG, DAILY
     Route: 048
  5. MIRTAZAPINE [Concomitant]
     Active Substance: MIRTAZAPINE
     Indication: Depression
     Dosage: 45 MG, DAILY
     Route: 048
     Dates: start: 2011
  6. DIAZEPAM [Concomitant]
     Active Substance: DIAZEPAM
     Indication: Anxiety
     Dosage: 10 MG, PRN (5-10MG)
     Route: 048
     Dates: start: 2011
  7. DIAZEPAM [Concomitant]
     Active Substance: DIAZEPAM
     Indication: Insomnia
  8. TAPENTADOL [Concomitant]
     Active Substance: TAPENTADOL
     Indication: Pain
     Dosage: 50 MG, BID
     Route: 048
     Dates: start: 2011
  9. OXYCODONE [Concomitant]
     Active Substance: OXYCODONE\OXYCODONE HYDROCHLORIDE
     Indication: Pain
     Dosage: 10 MG, PRN
     Route: 048
     Dates: start: 2011
  10. ACETAMINOPHEN [Concomitant]
     Active Substance: ACETAMINOPHEN
     Indication: Pain
     Dosage: 1 G, PRN
     Route: 048
     Dates: start: 2011
  11. IBUPROFEN [Concomitant]
     Active Substance: IBUPROFEN
     Indication: Pain
     Dosage: 400 MG, PRN
     Route: 048
     Dates: start: 2011
  12. INSULIN NOS [Concomitant]
     Active Substance: INSULIN NOS
     Indication: Type 2 diabetes mellitus
     Dosage: CONTINUOUS SUBCUTANEOUS INSULIN INFUSION (CSII)
     Route: 058
     Dates: start: 2019
  13. CAPSAICIN [Concomitant]
     Active Substance: CAPSAICIN
     Indication: Pain
     Dosage: 0.025 %, PRN
     Route: 061
     Dates: start: 2021
  14. LIPEGFILGRASTIM [Concomitant]
     Active Substance: LIPEGFILGRASTIM
     Indication: Neutropenia
     Dosage: 6 MG Q28
     Route: 058
     Dates: start: 20240311

REACTIONS (15)
  - Mucosal inflammation [Not Recovered/Not Resolved]
  - Thyroid cyst [Unknown]
  - Generalised anxiety disorder [Unknown]
  - Iron deficiency [Unknown]
  - Drug dependence [Unknown]
  - Drug abuse [Unknown]
  - Colitis [Unknown]
  - Gastrooesophageal reflux disease [Unknown]
  - Bipolar disorder [Unknown]
  - Intervertebral disc protrusion [Unknown]
  - Iliotibial band syndrome [Unknown]
  - Dizziness [Recovered/Resolved]
  - Fatigue [Unknown]
  - Myalgia [Unknown]
  - Diarrhoea [Recovered/Resolved]

NARRATIVE: CASE EVENT DATE: 20120101
